FAERS Safety Report 17028113 (Version 1)
Quarter: 2019Q4

REPORT INFORMATION
  Report Type: Spontaneous
  Country: JP (occurrence: JP)
  Receive Date: 20191113
  Receipt Date: 20191113
  Transmission Date: 20200122
  Serious: Yes (Other)
  Sender: FDA-Public Use
  Company Number: NVSJ2019JP002075

PATIENT
  Age: 79 Year

DRUGS (1)
  1. IMATINIB MESILATE [Suspect]
     Active Substance: IMATINIB MESYLATE
     Indication: CHRONIC MYELOID LEUKAEMIA
     Dosage: UNK
     Route: 048

REACTIONS (8)
  - Hypergammaglobulinaemia [Unknown]
  - Epstein-Barr virus associated lymphoproliferative disorder [Unknown]
  - Acute kidney injury [Unknown]
  - Lymphadenopathy [Unknown]
  - Splenomegaly [Unknown]
  - Disseminated intravascular coagulation [Unknown]
  - Malaise [Unknown]
  - Lymphocyte morphology abnormal [Unknown]
